FAERS Safety Report 23964829 (Version 5)
Quarter: 2024Q3

REPORT INFORMATION
  Report Type: Report from Study
  Country: KR (occurrence: KR)
  Receive Date: 20240612
  Receipt Date: 20240806
  Transmission Date: 20241017
  Serious: Yes (Death, Hospitalization, Other)
  Sender: ABBVIE
  Company Number: KR-ABBVIE-5792322

PATIENT
  Age: 70 Year
  Sex: Male
  Weight: 56 kg

DRUGS (16)
  1. VENETOCLAX [Suspect]
     Active Substance: VENETOCLAX
     Indication: Acute myeloid leukaemia
     Route: 048
     Dates: start: 20240510, end: 20240523
  2. VENETOCLAX [Suspect]
     Active Substance: VENETOCLAX
     Indication: Acute myeloid leukaemia
     Route: 048
     Dates: start: 20240509, end: 20240509
  3. VENETOCLAX [Suspect]
     Active Substance: VENETOCLAX
     Indication: Acute myeloid leukaemia
     Route: 048
     Dates: start: 20240508, end: 20240508
  4. VENETOCLAX [Suspect]
     Active Substance: VENETOCLAX
     Indication: Acute myeloid leukaemia
     Route: 048
     Dates: start: 20240611, end: 20240708
  5. SUPRAX [Concomitant]
     Active Substance: CEFIXIME
     Indication: Infection prophylaxis
     Dosage: FORM STRENGTH:100MG DONGA SUPRAX
     Route: 048
     Dates: start: 20240523, end: 20240604
  6. ALLOPURINOL [Concomitant]
     Active Substance: ALLOPURINOL
     Indication: Prophylaxis
     Dosage: TIME INTERVAL: 0.33333333 DAYS: FORM STRENGTH: 100 MG
     Route: 048
     Dates: start: 20240504, end: 20240514
  7. MEROPEN YUHAN INJ 500 mg [Concomitant]
     Indication: Pneumonia fungal
     Dosage: TIME INTERVAL: 0.33333333 DAYS: FORM STRENGTH: 500MG
     Route: 042
     Dates: start: 20240508, end: 20240510
  8. HYDROXYCHLOROQUINE SULFATE [Concomitant]
     Active Substance: HYDROXYCHLOROQUINE SULFATE
     Indication: Systemic lupus erythematosus
     Dosage: FORM STRENGTH: 200 MG
     Route: 048
     Dates: start: 2022
  9. AMBISOME [Concomitant]
     Active Substance: AMPHOTERICIN B
     Indication: Pneumonia fungal
     Route: 042
     Dates: start: 20240508, end: 20240517
  10. PREDNISOLONE [Concomitant]
     Active Substance: PREDNISOLONE
     Indication: Pneumonia fungal
     Route: 048
     Dates: start: 20240523, end: 20240526
  11. PREDNISOLONE [Concomitant]
     Active Substance: PREDNISOLONE
     Indication: Pneumonia fungal
     Route: 048
     Dates: start: 20240518, end: 20240520
  12. PREDNISOLONE [Concomitant]
     Active Substance: PREDNISOLONE
     Indication: Pneumonia fungal
     Route: 048
     Dates: start: 20240527, end: 20240604
  13. DACOGEN [Concomitant]
     Active Substance: DECITABINE
     Indication: Acute myeloid leukaemia
     Dosage: 32.6 MG
     Route: 042
     Dates: start: 20240508, end: 20240512
  14. DACOGEN [Concomitant]
     Active Substance: DECITABINE
     Indication: Acute myeloid leukaemia
     Dosage: 32.6 MG
     Route: 042
     Dates: end: 20240615
  15. METHYLPREDNISOLONE [Concomitant]
     Active Substance: METHYLPREDNISOLONE
     Indication: Pneumonia fungal
     Dosage: FORM STRENGTH: 125 MILLIGRAM
     Route: 042
     Dates: start: 20240508, end: 20240509
  16. METHYLPREDNISOLONE [Concomitant]
     Active Substance: METHYLPREDNISOLONE
     Indication: Pneumonia fungal
     Dosage: FORM STRENGTH: 125 MILLIGRAM
     Route: 042
     Dates: start: 20240510, end: 20240517

REACTIONS (3)
  - Acute myeloid leukaemia [Fatal]
  - Intestinal sepsis [Not Recovered/Not Resolved]
  - Colitis [Not Recovered/Not Resolved]

NARRATIVE: CASE EVENT DATE: 20240605
